FAERS Safety Report 15295895 (Version 3)
Quarter: 2018Q3

REPORT INFORMATION
  Report Type: Spontaneous
  Country: US (occurrence: US)
  Receive Date: 20180820
  Receipt Date: 20180925
  Transmission Date: 20181010
  Serious: No
  Sender: FDA-Public Use
  Company Number: US-ASTRAZENECA-2018SF00828

PATIENT
  Age: 55 Year
  Sex: Female
  Weight: 80.7 kg

DRUGS (3)
  1. BYDUREON [Suspect]
     Active Substance: EXENATIDE
     Indication: TYPE 2 DIABETES MELLITUS
     Route: 058
  2. BYDUREON BCISE [Suspect]
     Active Substance: EXENATIDE
     Indication: TYPE 2 DIABETES MELLITUS
     Route: 058
     Dates: start: 20180503
  3. BACTRIM [Concomitant]
     Active Substance: SULFAMETHOXAZOLE\TRIMETHOPRIM
     Indication: URINARY TRACT INFECTION
     Dates: start: 20180530, end: 20180606

REACTIONS (4)
  - Urinary tract infection [Recovered/Resolved]
  - Weight fluctuation [Not Recovered/Not Resolved]
  - Nausea [Unknown]
  - Device leakage [Unknown]

NARRATIVE: CASE EVENT DATE: 2008
